FAERS Safety Report 4457639-7 (Version None)
Quarter: 2004Q3

REPORT INFORMATION
  Report Type: 
  Country: None (occurrence: None)
  Receive Date: 20040922
  Receipt Date: 20040915
  Transmission Date: 20050211
  Serious: Yes (Death, Hospitalization)
  Sender: FDA-Public Use
  Company Number: 04P-163-0267875-00

PATIENT
  Age: 53 Year
  Sex: Male

DRUGS (4)
  1. NORVIR [Suspect]
     Indication: HIV INFECTION
     Dosage: 400 MG, 1 IN 1 D, PER ORAL
     Route: 048
     Dates: start: 20031119, end: 20040711
  2. TIPRANAVIR [Concomitant]
  3. TENOFOVIR [Concomitant]
  4. FUZEON [Concomitant]

REACTIONS (6)
  - ANAEMIA [None]
  - CARDIOMYOPATHY [None]
  - DIALYSIS [None]
  - FLUID OVERLOAD [None]
  - PALLOR [None]
  - RENAL FAILURE ACUTE [None]
